FAERS Safety Report 5301608-1 (Version None)
Quarter: 2007Q2

REPORT INFORMATION
  Report Type: 
  Country: None (occurrence: None)
  Receive Date: 20070419
  Receipt Date: 20070410
  Transmission Date: 20071010
  Serious: Yes (Hospitalization)
  Sender: FDA-Public Use
  Company Number: FRWYE394910APR07

PATIENT
  Age: 56 Year
  Sex: Female

DRUGS (6)
  1. EFFEXOR [Suspect]
     Indication: DEPRESSION
     Dosage: 150 MG TOTAL DAILY
     Route: 048
  2. RISPERDAL [Suspect]
     Route: 048
  3. DI-ANTALVIC [Suspect]
     Route: 048
     Dates: end: 20060726
  4. NOCTRAN 10 [Suspect]
     Route: 048
  5. CELEBREX [Suspect]
     Route: 048
     Dates: end: 20060726
  6. VALIUM [Suspect]
     Route: 048

REACTIONS (5)
  - CITROBACTER INFECTION [None]
  - DIARRHOEA [None]
  - FALL [None]
  - ORTHOSTATIC HYPOTENSION [None]
  - URINARY TRACT INFECTION BACTERIAL [None]
